FAERS Safety Report 15009576 (Version 1)
Quarter: 2018Q2

REPORT INFORMATION
  Report Type: Spontaneous
  Country: GB (occurrence: GB)
  Receive Date: 20180614
  Receipt Date: 20180614
  Transmission Date: 20180711
  Serious: Yes (Other)
  Sender: FDA-Public Use
  Company Number: GB-TEVA-2018-GB-907056

PATIENT
  Age: 39 Year
  Sex: Male

DRUGS (3)
  1. ZAPONEX [Suspect]
     Active Substance: CLOZAPINE
     Dosage: 400 MILLIGRAM DAILY;
     Route: 048
     Dates: start: 20090203, end: 201706
  2. ZAPONEX [Suspect]
     Active Substance: CLOZAPINE
     Route: 048
     Dates: start: 20170620
  3. CAPECITABINE. [Suspect]
     Active Substance: CAPECITABINE
     Indication: COLON CANCER
     Dates: end: 201801

REACTIONS (8)
  - Off label use [Not Recovered/Not Resolved]
  - Platelet count decreased [Not Recovered/Not Resolved]
  - Contraindicated product administered [Recovered/Resolved]
  - Leukopenia [Recovered/Resolved]
  - Colon cancer [Not Recovered/Not Resolved]
  - Neutrophil count decreased [Recovered/Resolved]
  - Neutropenia [Recovered/Resolved]
  - White blood cell count decreased [Recovered/Resolved]

NARRATIVE: CASE EVENT DATE: 20171003
